FAERS Safety Report 12105154 (Version 2)
Quarter: 2016Q1

REPORT INFORMATION
  Report Type: Spontaneous
  Country: US (occurrence: US)
  Receive Date: 20160223
  Receipt Date: 20160223
  Transmission Date: 20160526
  Serious: Yes (Death, Hospitalization, Other)
  Sender: FDA-Public Use
  Company Number: US-SA-2015SA109438

PATIENT
  Age: 72 Year
  Sex: Male
  Weight: 98.2 kg

DRUGS (35)
  1. NOVOLOG [Concomitant]
     Active Substance: INSULIN ASPART
     Dates: start: 20131120, end: 20131122
  2. MAGNESIUM HYDROXIDE. [Concomitant]
     Active Substance: MAGNESIUM HYDROXIDE
     Dates: start: 20131120, end: 20131122
  3. FLUOROURACIL. [Concomitant]
     Active Substance: FLUOROURACIL
     Dates: start: 20140114, end: 20140114
  4. CEFOXITIN [Concomitant]
     Active Substance: CEFOXITIN SODIUM
     Dates: start: 20131120, end: 20131120
  5. CLOBETASOL [Concomitant]
     Active Substance: CLOBETASOL
     Dates: start: 20131030, end: 20131130
  6. DIPHENHYDRAMINE. [Concomitant]
     Active Substance: DIPHENHYDRAMINE
     Dates: start: 20140203
  7. LIDOCAINE. [Concomitant]
     Active Substance: LIDOCAINE
     Dates: start: 20140203
  8. ALVIMOPAN [Concomitant]
     Active Substance: ALVIMOPAN
     Dates: start: 20131120, end: 20131120
  9. OXALIPLATIN. [Suspect]
     Active Substance: OXALIPLATIN
     Indication: COLON CANCER METASTATIC
     Route: 065
     Dates: start: 20140128
  10. METOPROLOL TARTRATE. [Concomitant]
     Active Substance: METOPROLOL TARTRATE
     Dates: start: 20130423
  11. ZESTRIL [Concomitant]
     Active Substance: LISINOPRIL
     Dates: start: 1998, end: 20130826
  12. HEPARIN [Concomitant]
     Active Substance: HEPARIN SODIUM
     Dates: start: 20131121, end: 20131122
  13. WARFARIN [Concomitant]
     Active Substance: WARFARIN
     Dates: start: 20130423, end: 20130618
  14. METFORMIN [Concomitant]
     Active Substance: METFORMIN HYDROCHLORIDE
     Dates: start: 2012
  15. LACTATED RINGERS [Concomitant]
     Active Substance: CALCIUM CHLORIDE\POTASSIUM CHLORIDE\SODIUM CHLORIDE\SODIUM LACTATE
     Dates: start: 20131120, end: 20131120
  16. MORPHINE [Concomitant]
     Active Substance: MORPHINE
     Dates: start: 20131120, end: 20131121
  17. PERCOCET [Concomitant]
     Active Substance: ACETAMINOPHEN\OXYCODONE HYDROCHLORIDE
     Dates: start: 20131121, end: 20131122
  18. DEXAMETHASONE. [Concomitant]
     Active Substance: DEXAMETHASONE
     Dates: start: 20140114, end: 20140114
  19. CAMPTO [Suspect]
     Active Substance: IRINOTECAN
     Indication: COLON CANCER METASTATIC
     Route: 065
  20. PANITUMUMAB [Suspect]
     Active Substance: PANITUMUMAB
     Indication: COLON CANCER METASTATIC
     Route: 065
  21. FLUOROURACIL. [Suspect]
     Active Substance: FLUOROURACIL
     Indication: COLON CANCER METASTATIC
     Route: 065
  22. OFIRMEV [Concomitant]
     Active Substance: ACETAMINOPHEN
     Dates: start: 20131120, end: 20131120
  23. METOCLOPRAMIDE HYDROCHLORIDE. [Concomitant]
     Active Substance: METOCLOPRAMIDE HYDROCHLORIDE
     Dates: start: 20131120, end: 20131122
  24. ROPIVACAINE [Concomitant]
     Active Substance: ROPIVACAINE
     Dates: start: 20131120, end: 20131122
  25. HYDROXYZINE [Concomitant]
     Active Substance: HYDROXYZINE\HYDROXYZINE HYDROCHLORIDE
     Dates: start: 20140305
  26. LEVOLEUCOVORIN. [Concomitant]
     Active Substance: LEVOLEUCOVORIN
     Dates: start: 20140114, end: 20140114
  27. ASPIRIN. [Concomitant]
     Active Substance: ASPIRIN
     Dates: start: 20130423
  28. SYNTHROID [Concomitant]
     Active Substance: LEVOTHYROXINE SODIUM
     Dates: start: 1998
  29. FOSAPREPITANT [Concomitant]
     Active Substance: FOSAPREPITANT
     Dates: start: 20140114, end: 20140114
  30. GLUCOTROL XL [Concomitant]
     Active Substance: GLIPIZIDE
     Dates: start: 1993
  31. HYDROCORTISONE. [Concomitant]
     Active Substance: HYDROCORTISONE
     Dates: start: 20130726
  32. SODIUM CHLORIDE. [Concomitant]
     Active Substance: SODIUM CHLORIDE
     Dates: start: 20131121, end: 20131121
  33. FAMOTIDINE. [Concomitant]
     Active Substance: FAMOTIDINE
     Dates: start: 20131120, end: 20131122
  34. OMEPRAZOLE. [Concomitant]
     Active Substance: OMEPRAZOLE
     Dates: start: 20140219
  35. MAALOX ANTACID [Concomitant]
     Active Substance: ALUMINUM HYDROXIDE\DIMETHICONE\MAGNESIUM HYDROXIDE
     Dates: start: 20140203

REACTIONS (2)
  - Duodenal ulcer haemorrhage [Fatal]
  - Pancytopenia [Not Recovered/Not Resolved]

NARRATIVE: CASE EVENT DATE: 20140401
